FAERS Safety Report 7545044-6 (Version None)
Quarter: 2011Q2

REPORT INFORMATION
  Report Type: 
  Country: None (occurrence: None)
  Receive Date: 20110614
  Receipt Date: 20110531
  Transmission Date: 20111010
  Serious: Yes (Other)
  Sender: FDA-Public Use
  Company Number: US-BAYER-201023038NA

PATIENT
  Age: 23 Year
  Sex: Female
  Weight: 56.689 kg

DRUGS (5)
  1. DROSPIRENONE AND ETHINYL ESTRADIOL [Suspect]
     Indication: PRODUCT USED FOR UNKNOWN INDICATION
     Route: 048
     Dates: start: 20040101, end: 20060615
  2. DOXYCYCLINE MONOHYDRATE [Concomitant]
     Dosage: UNK
  3. BENZACLIN [Concomitant]
  4. YASMIN [Suspect]
     Indication: ACNE
     Route: 048
     Dates: start: 20040101, end: 20060615
  5. DIFFERIN [Concomitant]

REACTIONS (6)
  - ANXIETY [None]
  - PANIC ATTACK [None]
  - INSOMNIA [None]
  - CHOLECYSTITIS CHRONIC [None]
  - GALLBLADDER DISORDER [None]
  - SCAR [None]
